FAERS Safety Report 6373048-8 (Version None)
Quarter: 2009Q3

REPORT INFORMATION
  Report Type: 
  Country: None (occurrence: None)
  Receive Date: 20090924
  Receipt Date: 20090611
  Transmission Date: 20100115
  Serious: Yes (Other)
  Sender: FDA-Public Use
  Company Number: US-ASTRAZENECA-2009UW03062

PATIENT
  Age: 1030 Month
  Sex: Female
  Weight: 52.2 kg

DRUGS (3)
  1. SEROQUEL [Suspect]
     Indication: ANXIETY
     Dosage: 25 MG, 50 MG, 100 MG
     Route: 048
     Dates: start: 20060823, end: 20070827
  2. SEROQUEL [Suspect]
     Indication: DEPRESSION
     Dosage: 25 MG, 50 MG, 100 MG
     Route: 048
     Dates: start: 20060823, end: 20070827
  3. OTHER PSYCHIATRIC MEDICATION [Concomitant]

REACTIONS (2)
  - BACK PAIN [None]
  - PANCREATITIS [None]
